FAERS Safety Report 8594335-9 (Version None)
Quarter: 2012Q3

REPORT INFORMATION
  Report Type: 
  Country: None (occurrence: None)
  Receive Date: 20120815
  Receipt Date: 20120803
  Transmission Date: 20120928
  Serious: No
  Sender: FDA-Public Use
  Company Number: US-BIOGENIDEC-2012BI029552

PATIENT
  Age: 50 Year
  Sex: Female

DRUGS (5)
  1. AVONEX [Concomitant]
     Route: 030
  2. TYSABRI [Suspect]
     Indication: MULTIPLE SCLEROSIS
     Route: 042
     Dates: start: 20050217
  3. AVONEX [Concomitant]
     Indication: MULTIPLE SCLEROSIS
     Route: 030
  4. AVONEX [Concomitant]
     Route: 030
     Dates: start: 20030530
  5. TYSABRI [Suspect]
     Route: 042
     Dates: start: 20120228

REACTIONS (2)
  - GINGIVAL SWELLING [None]
  - GINGIVAL PAIN [None]
